FAERS Safety Report 8423288-9 (Version None)
Quarter: 2012Q2

REPORT INFORMATION
  Report Type: 
  Country: None (occurrence: None)
  Receive Date: 20120608
  Receipt Date: 20120606
  Transmission Date: 20120825
  Serious: Yes (Other)
  Sender: FDA-Public Use
  Company Number: PHEH2012US011475

PATIENT
  Sex: Female

DRUGS (2)
  1. COUMADIN [Concomitant]
     Dosage: UNK UKN, UNK
  2. DIOVAN [Suspect]
     Dosage: 320 MG, DAILY

REACTIONS (2)
  - THROMBOSIS [None]
  - CONFUSIONAL STATE [None]
